FAERS Safety Report 5591303-6 (Version None)
Quarter: 2008Q1

REPORT INFORMATION
  Report Type: 
  Country: None (occurrence: None)
  Receive Date: 20080115
  Receipt Date: 20080108
  Transmission Date: 20080703
  Serious: Yes (Disabling)
  Sender: FDA-Public Use
  Company Number: PL-AVENTIS-200719944GDDC

PATIENT
  Age: 21 Year
  Sex: Female
  Weight: 72 kg

DRUGS (5)
  1. TELFAST                            /01314201/ [Suspect]
     Indication: URTICARIA
     Route: 048
  2. CLEMASTIN [Suspect]
     Indication: URTICARIA
     Route: 048
     Dates: end: 20070809
  3. ZYRTEC [Suspect]
     Indication: URTICARIA
     Route: 048
     Dates: end: 20070809
  4. FENISTIL [Concomitant]
  5. MOMETASONE FUROATE [Concomitant]

REACTIONS (3)
  - BALANCE DISORDER [None]
  - DIZZINESS [None]
  - DRY MOUTH [None]
